FAERS Safety Report 14351005 (Version 2)
Quarter: 2019Q3

REPORT INFORMATION
  Report Type: Report from Study
  Country: BE (occurrence: BE)
  Receive Date: 20180104
  Receipt Date: 20190703
  Transmission Date: 20191004
  Serious: Yes (Other)
  Sender: FDA-Public Use
  Company Number: BE-MYLANLABS-2018M1000194

PATIENT
  Age: 82 Year
  Sex: Male
  Weight: 73.4 kg

DRUGS (13)
  1. FOLINIC ACID [Suspect]
     Active Substance: LEUCOVORIN
     Dosage: 1 DOSAGE FORM, Q2W
     Route: 040
     Dates: start: 20160229
  2. AVASTIN [Suspect]
     Active Substance: BEVACIZUMAB
     Indication: COLORECTAL CANCER METASTATIC
     Dosage: 1 DOSAGE FORM, Q2W (17 CYCLES)
     Route: 042
     Dates: start: 20140319, end: 20151116
  3. FLUOROURACIL. [Suspect]
     Active Substance: FLUOROURACIL
     Indication: COLORECTAL CANCER METASTATIC
     Dosage: 1 DOSAGE FORM, Q2W (3 CYCLES)
     Route: 040
     Dates: start: 20140319, end: 20151116
  4. AVASTIN [Suspect]
     Active Substance: BEVACIZUMAB
     Dosage: 1 DOSAGE FORM, Q3W
     Route: 042
     Dates: start: 20160711, end: 20160822
  5. OXALIPLATIN. [Suspect]
     Active Substance: OXALIPLATIN
     Dosage: 1 DOSAGE FORM, Q3W
     Route: 065
     Dates: start: 20160711, end: 20160822
  6. AVASTIN [Suspect]
     Active Substance: BEVACIZUMAB
     Dosage: 1 DOSAGE FORM, Q2W
     Route: 042
     Dates: start: 20160229
  7. VORINA [Concomitant]
     Indication: PRODUCT USED FOR UNKNOWN INDICATION
     Dosage: 315 MG, UNK
     Route: 042
     Dates: start: 20160229, end: 20160822
  8. IRINOTECAN [Concomitant]
     Active Substance: IRINOTECAN
     Indication: COLORECTAL CANCER METASTATIC
     Dosage: 1 DOSAGE FORM, Q2W
     Route: 065
     Dates: start: 20140319, end: 20151116
  9. AMLODIPINE EG [Concomitant]
     Active Substance: AMLODIPINE BESYLATE
     Indication: PRODUCT USED FOR UNKNOWN INDICATION
     Dosage: 5 MILLIGRAM, QD
     Route: 048
     Dates: start: 20140910
  10. FLUOROURACIL. [Suspect]
     Active Substance: FLUOROURACIL
     Dosage: 1 DOSAGE FORM, Q2W
     Route: 040
     Dates: start: 20160229, end: 20160822
  11. FOLINIC ACID [Suspect]
     Active Substance: LEUCOVORIN
     Indication: COLORECTAL CANCER METASTATIC
     Dosage: 1 DOSAGE FORM, Q2W (3 CYCLES)
     Route: 040
     Dates: start: 20140319, end: 20151116
  12. OXALIPLATIN. [Suspect]
     Active Substance: OXALIPLATIN
     Indication: COLORECTAL CANCER METASTATIC
     Dosage: 1 DOSAGE FORM, Q2W
     Route: 065
     Dates: start: 20160229, end: 20160711
  13. BROMAZEPAM [Concomitant]
     Active Substance: BROMAZEPAM
     Indication: PRODUCT USED FOR UNKNOWN INDICATION
     Dosage: 6 MILLIGRAM, QD
     Route: 048
     Dates: start: 20160418

REACTIONS (7)
  - Leukopenia [Recovered/Resolved]
  - Musculoskeletal stiffness [Recovered/Resolved]
  - Upper respiratory tract infection [Recovered/Resolved]
  - Nasopharyngitis [Recovered/Resolved]
  - Thrombocytopenia [Recovered/Resolved]
  - Neutropenia [Recovered/Resolved]
  - Polyneuropathy [Not Recovered/Not Resolved]

NARRATIVE: CASE EVENT DATE: 20150805
